FAERS Safety Report 6038146-7 (Version None)
Quarter: 2009Q1

REPORT INFORMATION
  Report Type: 
  Country: None (occurrence: None)
  Receive Date: 20090115
  Receipt Date: 20090105
  Transmission Date: 20090719
  Serious: Yes (Death, Life-Threatening, Hospitalization, Other)
  Sender: FDA-Public Use
  Company Number: US-WYE-H07565809

PATIENT
  Age: 28 Year
  Sex: Male

DRUGS (2)
  1. VENLAFAXINE HYDROCHLORIDE [Suspect]
     Dosage: OVERDOSE AMOUNT UNKNOWN
     Route: 048
     Dates: start: 20070101, end: 20070101
  2. FLUOXETINE HCL [Suspect]
     Dosage: OVERDOSE AMOUNT UNKNOWN
     Route: 048
     Dates: start: 20070101, end: 20070101

REACTIONS (6)
  - ATRIOVENTRICULAR BLOCK COMPLETE [None]
  - COMPLETED SUICIDE [None]
  - CONVULSION [None]
  - INTENTIONAL OVERDOSE [None]
  - PYREXIA [None]
  - VENTRICULAR FIBRILLATION [None]
